FAERS Safety Report 10854162 (Version 3)
Quarter: 2015Q4

REPORT INFORMATION
  Report Type: Report from Study
  Country: GB (occurrence: GB)
  Receive Date: 20150223
  Receipt Date: 20151009
  Transmission Date: 20160304
  Serious: Yes (Other)
  Sender: FDA-Public Use
  Company Number: GB-THROMBOGENICS NV-CLI-2014-0700

PATIENT
  Age: 77 Year
  Sex: Female

DRUGS (6)
  1. SALBUTAMOL [Concomitant]
     Active Substance: ALBUTEROL
     Indication: ASTHMA
     Dosage: PRN
     Route: 050
  2. LIVIAL [Concomitant]
     Active Substance: TIBOLONE
     Indication: HORMONE REPLACEMENT THERAPY
     Dosage: 2.5 MG
     Route: 048
  3. OMEPRAZOLE. [Concomitant]
     Active Substance: OMEPRAZOLE
     Indication: PROPHYLAXIS
     Dosage: 20 MG
     Route: 048
  4. JETREA [Suspect]
     Active Substance: OCRIPLASMIN
     Indication: VITREOUS ADHESIONS
     Dosage: 0.125 MG, ONE TIME DOSE
     Route: 031
     Dates: start: 20140430, end: 20140430
  5. DOXAZOSIN [Concomitant]
     Active Substance: DOXAZOSIN\DOXAZOSIN MESYLATE
     Indication: HYPERTENSION
     Dosage: 2 MG
     Route: 048
  6. FLUCONAZOLE. [Concomitant]
     Active Substance: FLUCONAZOLE
     Indication: NAIL INFECTION
     Dosage: PRN
     Route: 048

REACTIONS (11)
  - Visual acuity reduced [Recovered/Resolved]
  - Nausea [Recovered/Resolved]
  - Pupillary reflex impaired [Not Recovered/Not Resolved]
  - Chromatopsia [Not Recovered/Not Resolved]
  - Vision blurred [Unknown]
  - Photopsia [Recovered/Resolved]
  - Vitreous floaters [Recovered/Resolved]
  - Night blindness [Unknown]
  - Retinal injury [Recovered/Resolved]
  - Retinogram abnormal [Not Recovered/Not Resolved]
  - Metamorphopsia [Unknown]

NARRATIVE: CASE EVENT DATE: 20140501
